FAERS Safety Report 9749884 (Version 1)
Quarter: 2013Q4

REPORT INFORMATION
  Report Type: Spontaneous
  Country: NL (occurrence: NL)
  Receive Date: 20131212
  Receipt Date: 20131212
  Transmission Date: 20140711
  Serious: Yes (Hospitalization)
  Sender: FDA-Public Use
  Company Number: NL-TEVA-447974ISR

PATIENT
  Age: 50 Year
  Sex: Female
  Weight: 69 kg

DRUGS (1)
  1. PROPRANOLOL TABLET 40MG [Suspect]
     Indication: MIGRAINE
     Dosage: 80 MILLIGRAM DAILY;
     Route: 048
     Dates: start: 20131107, end: 20131114

REACTIONS (2)
  - Arteriospasm coronary [Recovered/Resolved]
  - Myocardial infarction [Recovered/Resolved]
